FAERS Safety Report 6195512-7 (Version None)
Quarter: 2009Q2

REPORT INFORMATION
  Report Type: 
  Country: None (occurrence: None)
  Receive Date: 20090519
  Receipt Date: 20090507
  Transmission Date: 20091009
  Serious: Yes (Life-Threatening, Hospitalization)
  Sender: FDA-Public Use
  Company Number: NZ-PFIZER INC-2009194031

PATIENT
  Age: 16 Year

DRUGS (2)
  1. ZELDOX [Suspect]
     Indication: PSYCHOTIC DISORDER
     Dosage: 40MG IN TWO DOSES AND INCREASED TO 20 AND 40MG
     Route: 048
     Dates: start: 20071004, end: 20071012
  2. RISPERIDONE [Concomitant]
     Indication: PSYCHOTIC DISORDER
     Dosage: 2 MG, 1X/DAY
     Route: 048
     Dates: start: 20070108

REACTIONS (7)
  - ARRHYTHMIA [None]
  - DEHYDRATION [None]
  - EYE DISORDER [None]
  - MUSCLE SPASMS [None]
  - TACHYCARDIA [None]
  - TONGUE SPASM [None]
  - TREMOR [None]
